FAERS Safety Report 6033068-X (Version None)
Quarter: 2009Q1

REPORT INFORMATION
  Report Type: 
  Country: None (occurrence: None)
  Receive Date: 20090107
  Receipt Date: 20081230
  Transmission Date: 20090719
  Serious: No
  Sender: FDA-Public Use
  Company Number: APP200801258

PATIENT
  Age: 34 Year
  Sex: Female

DRUGS (1)
  1. HEPARIN SODIUM INJECTION [Suspect]
     Indication: THROMBOSIS PROPHYLAXIS
     Dosage: 5000 USP UNITS 2 IN 1 D, SUBCUTANEOUS
     Route: 058
     Dates: start: 20081215

REACTIONS (3)
  - DRUG EXPOSURE DURING PREGNANCY [None]
  - RETCHING [None]
  - VOMITING [None]
